FAERS Safety Report 9775816 (Version 1)
Quarter: 2013Q4

REPORT INFORMATION
  Report Type: Spontaneous
  Country: GB (occurrence: GB)
  Receive Date: 20131220
  Receipt Date: 20131220
  Transmission Date: 20140711
  Serious: Yes (Life-Threatening)
  Sender: FDA-Public Use
  Company Number: GB-TEVA-451403ISR

PATIENT
  Age: 31 Year
  Sex: Male

DRUGS (3)
  1. GABAPENTIN [Suspect]
     Indication: SCIATICA
     Route: 048
     Dates: end: 20131130
  2. MIRTAZAPINE [Suspect]
     Indication: DEPRESSION
     Route: 048
     Dates: end: 20131130
  3. METHADONE [Suspect]
     Indication: TOXICITY TO VARIOUS AGENTS
     Route: 048

REACTIONS (3)
  - Intentional overdose [Recovered/Resolved with Sequelae]
  - Sedation [Recovered/Resolved]
  - Loss of consciousness [Recovered/Resolved]
